FAERS Safety Report 5715983-7 (Version None)
Quarter: 2008Q2

REPORT INFORMATION
  Report Type: 
  Country: None (occurrence: None)
  Receive Date: 20080423
  Receipt Date: 20080423
  Transmission Date: 20081010
  Serious: Yes (Other)
  Sender: FDA-Public Use
  Company Number: None

PATIENT
  Sex: Female
  Weight: 99.7913 kg

DRUGS (1)
  1. CYMBALTA [Suspect]
     Indication: MIGRAINE
     Dosage: 1  DAY PO
     Route: 048

REACTIONS (9)
  - ASTHENIA [None]
  - BLINDNESS TRANSIENT [None]
  - DRUG INEFFECTIVE [None]
  - EYE INFECTION [None]
  - EYE PAIN [None]
  - MOOD ALTERED [None]
  - VISUAL DISTURBANCE [None]
  - WEIGHT INCREASED [None]
  - WEIGHT LOSS POOR [None]
